FAERS Safety Report 18895238 (Version 1)
Quarter: 2021Q1

REPORT INFORMATION
  Report Type: Spontaneous
  Country: JP (occurrence: JP)
  Receive Date: 20210216
  Receipt Date: 20210216
  Transmission Date: 20210420
  Serious: Yes (Hospitalization)
  Sender: FDA-Public Use
  Company Number: JP-AMGEN-JPNSP2020036286

PATIENT
  Age: 83 Year
  Sex: Female

DRUGS (3)
  1. PRALIA [Suspect]
     Active Substance: DENOSUMAB
     Dosage: 60 MILLIGRAM
     Route: 065
     Dates: start: 20200309, end: 20200309
  2. PRALIA [Suspect]
     Active Substance: DENOSUMAB
     Indication: RHEUMATIC DISORDER
     Dosage: 60 MILLIGRAM
     Route: 065
     Dates: start: 2017
  3. ORENCIA [Concomitant]
     Active Substance: ABATACEPT
     Indication: RHEUMATIC DISORDER
     Dosage: UNK
     Route: 065

REACTIONS (4)
  - Rheumatic disorder [Not Recovered/Not Resolved]
  - Tooth extraction [Recovered/Resolved]
  - Off label use [Unknown]
  - Back pain [Recovered/Resolved]

NARRATIVE: CASE EVENT DATE: 20200106
